FAERS Safety Report 21656499 (Version 1)
Quarter: 2022Q4

REPORT INFORMATION
  Report Type: Spontaneous
  Country: US (occurrence: None)
  Receive Date: 20221128
  Receipt Date: 20221128
  Transmission Date: 20230113
  Serious: Yes (Hospitalization)
  Sender: FDA-Public Use
  Company Number: None

PATIENT
  Age: 77 Year
  Sex: Female
  Weight: 63.46 kg

DRUGS (22)
  1. TEMOZOLOMIDE [Suspect]
     Active Substance: TEMOZOLOMIDE
     Indication: Brain neoplasm malignant
     Dosage: FREQUENCY : DAILY;?
     Route: 048
  2. ALPRAZOLAM [Concomitant]
     Active Substance: ALPRAZOLAM
  3. AMLODIPINE [Concomitant]
     Active Substance: AMLODIPINE BESYLATE
  4. ANASTROZOLE [Concomitant]
     Active Substance: ANASTROZOLE
  5. BACTRIM DS [Concomitant]
     Active Substance: SULFAMETHOXAZOLE\TRIMETHOPRIM
  6. COMBIVENT RESPIMAT [Concomitant]
     Active Substance: ALBUTEROL SULFATE\IPRATROPIUM BROMIDE
  7. FLUTICASONE [Concomitant]
  8. KEPPRA [Concomitant]
     Active Substance: LEVETIRACETAM
  9. LETROZOLE [Concomitant]
     Active Substance: LETROZOLE
  10. LIDOCAINE [Concomitant]
     Active Substance: LIDOCAINE
  11. LORAZEPAM [Concomitant]
     Active Substance: LORAZEPAM
  12. medical marijuana [Concomitant]
  13. METOPROLOL [Concomitant]
     Active Substance: METOPROLOL
  14. OXYCODONE [Concomitant]
     Active Substance: OXYCODONE
  15. PANTOPRAZOLE [Concomitant]
     Active Substance: PANTOPRAZOLE
  16. PREDNISONE [Concomitant]
     Active Substance: PREDNISONE
  17. SPIRIVA RESPIMAT [Concomitant]
     Active Substance: TIOTROPIUM BROMIDE
  18. Symbicort Inhalation [Concomitant]
  19. TRIAZOLAM [Concomitant]
     Active Substance: TRIAZOLAM
  20. TYLENOL [Concomitant]
     Active Substance: ACETAMINOPHEN
  21. VENLAFAXINE [Concomitant]
     Active Substance: VENLAFAXINE HYDROCHLORIDE
  22. ZYRTEC [Concomitant]
     Active Substance: CETIRIZINE HYDROCHLORIDE

REACTIONS (1)
  - Hospitalisation [None]
